FAERS Safety Report 7892618-9 (Version None)
Quarter: 2011Q4

REPORT INFORMATION
  Report Type: 
  Country: None (occurrence: None)
  Receive Date: 20111102
  Receipt Date: 20111025
  Transmission Date: 20120403
  Serious: Yes (Death, Hospitalization, Other)
  Sender: FDA-Public Use
  Company Number: AUR-APL-2011-05625

PATIENT
  Age: 34 Year
  Sex: Female
  Weight: 56 kg

DRUGS (13)
  1. PROPRANOLOL [Suspect]
     Indication: PRODUCT USED FOR UNKNOWN INDICATION
     Dosage: 80 MG (40 MG, 2 IN 1 D)
  2. FUROSEMIDE [Suspect]
     Indication: PRODUCT USED FOR UNKNOWN INDICATION
     Dosage: 80 MG (40 MG, 2 IN 1 D)
  3. MACRODANTIN [Suspect]
     Indication: PROPHYLAXIS
  4. DIPYRONE INJ [Suspect]
     Indication: PRODUCT USED FOR UNKNOWN INDICATION
  5. NYSTATIN [Suspect]
     Indication: PRODUCT USED FOR UNKNOWN INDICATION
  6. CLARITHROMYCIN [Suspect]
     Indication: PRODUCT USED FOR UNKNOWN INDICATION
  7. VANCOMYCIN [Suspect]
     Indication: PRODUCT USED FOR UNKNOWN INDICATION
  8. CEFTRIAXONE [Suspect]
     Indication: TRACHEOBRONCHITIS
     Dosage: INTRAMUSCULAR, (2 GM, 1 D), INTRAMUSCULAR
     Route: 030
  9. CEFTRIAXONE [Suspect]
     Indication: PYELONEPHRITIS
     Dosage: INTRAMUSCULAR, (2 GM, 1 D), INTRAMUSCULAR
     Route: 030
  10. IMIPENEM (IMIPENEM) [Suspect]
     Indication: PRODUCT USED FOR UNKNOWN INDICATION
  11. GANCICLOVIR [Suspect]
     Indication: PRODUCT USED FOR UNKNOWN INDICATION
  12. OXYTOCIN [Concomitant]
  13. NITRIC OXYDE (NITRIC OXYDE) [Concomitant]

REACTIONS (54)
  - TRICUSPID VALVE INCOMPETENCE [None]
  - RALES [None]
  - INTESTINAL DILATATION [None]
  - RENAL FAILURE ACUTE [None]
  - PULMONARY EMBOLISM [None]
  - MULTI-ORGAN FAILURE [None]
  - LEUKOCYTOSIS [None]
  - WHEEZING [None]
  - GENERAL PHYSICAL HEALTH DETERIORATION [None]
  - BONE MARROW FAILURE [None]
  - BRONCHOPNEUMONIA [None]
  - CARDIAC FAILURE CONGESTIVE [None]
  - BRONCHOPULMONARY ASPERGILLOSIS [None]
  - PREMATURE DELIVERY [None]
  - TRACHEOBRONCHITIS [None]
  - OXYGEN SATURATION DECREASED [None]
  - METABOLIC ACIDOSIS [None]
  - PULMONARY HYPERTENSION [None]
  - PULMONARY NECROSIS [None]
  - RESPIRATORY DISTRESS [None]
  - LOCALISED INTRAABDOMINAL FLUID COLLECTION [None]
  - CARDIAC ARREST [None]
  - SYSTEMIC INFLAMMATORY RESPONSE SYNDROME [None]
  - KIDNEY FIBROSIS [None]
  - POSTPARTUM SEPSIS [None]
  - HEART RATE INCREASED [None]
  - OLIGOHYDRAMNIOS [None]
  - CARDIOMEGALY [None]
  - PULMONARY CONGESTION [None]
  - ODYNOPHAGIA [None]
  - OLIGURIA [None]
  - CONVULSION [None]
  - DEPRESSED LEVEL OF CONSCIOUSNESS [None]
  - CYTOMEGALOVIRUS TEST POSITIVE [None]
  - PARVOVIRUS B19 TEST POSITIVE [None]
  - CARDIOGENIC SHOCK [None]
  - BONE MARROW OEDEMA [None]
  - MATERNAL EXPOSURE DURING PREGNANCY [None]
  - AORTIC VALVE INCOMPETENCE [None]
  - CAESAREAN SECTION [None]
  - COUGH [None]
  - PALLOR [None]
  - ORAL CANDIDIASIS [None]
  - AGITATION [None]
  - SEPTIC SHOCK [None]
  - NEUTROPENIA [None]
  - PYREXIA [None]
  - BLOOD PRESSURE DECREASED [None]
  - NO THERAPEUTIC RESPONSE [None]
  - LEUKOPENIA [None]
  - MITRAL VALVE STENOSIS [None]
  - LUNG INFECTION [None]
  - AGRANULOCYTOSIS [None]
  - RENAL TUBULAR ATROPHY [None]
